FAERS Safety Report 8079694-8 (Version None)
Quarter: 2012Q1

REPORT INFORMATION
  Report Type: 
  Country: None (occurrence: None)
  Receive Date: 20120128
  Receipt Date: 20110721
  Transmission Date: 20120608
  Serious: No
  Sender: FDA-Public Use
  Company Number: US-ABBOTT-11P-163-0840959-00

PATIENT
  Age: 67 Year
  Sex: Male

DRUGS (12)
  1. LEXAPRO [Concomitant]
     Indication: ANXIETY
     Dosage: DAILY
  2. CLONAZEPAM [Concomitant]
     Indication: RESTLESS LEGS SYNDROME
     Dosage: DAILY
  3. CRESTOR [Concomitant]
     Indication: BLOOD CHOLESTEROL INCREASED
     Dosage: DAILY
  4. VOLTAREN [Concomitant]
     Indication: PAIN
     Dosage: APPLY TO AFFECTED PAINFUL AREAS 4X DAILY
     Route: 061
  5. LORTAB [Concomitant]
     Indication: ARTHRALGIA
     Dosage: 10/50MG 2X DAILY
  6. DEXILANT [Concomitant]
     Indication: GASTROOESOPHAGEAL REFLUX DISEASE
     Dosage: DAILY
  7. HUMIRA [Suspect]
     Indication: RHEUMATOID ARTHRITIS
  8. METHOTREXATE [Concomitant]
     Indication: RHEUMATOID ARTHRITIS
     Dosage: 6 TABLETS WEEKLY
  9. VITAMIN D [Concomitant]
     Indication: SUPPLEMENTATION THERAPY
     Dosage: WEEKLY
  10. LEXAPRO [Concomitant]
     Indication: DEPRESSION
  11. FOLIC ACID [Concomitant]
     Indication: VITAMIN SUPPLEMENTATION
     Dosage: DAILY
  12. BONIVA [Concomitant]
     Indication: OSTEOPOROSIS

REACTIONS (1)
  - INJECTION SITE PAIN [None]
